FAERS Safety Report 5638448-X (Version None)
Quarter: 2008Q1

REPORT INFORMATION
  Report Type: 
  Country: None (occurrence: None)
  Receive Date: 20080226
  Receipt Date: 20080222
  Transmission Date: 20080703
  Serious: Yes (Death, Life-Threatening)
  Sender: FDA-Public Use
  Company Number: DE-GENENTECH-223136

PATIENT
  Sex: Male
  Weight: 70 kg

DRUGS (11)
  1. RITUXIMAB [Suspect]
     Indication: DIFFUSE LARGE B-CELL LYMPHOMA
     Dosage: 680 MG, Q2W
     Route: 042
     Dates: start: 20050426, end: 20050721
  2. CYCLOPHOSPHAMIDE [Suspect]
     Indication: DIFFUSE LARGE B-CELL LYMPHOMA
     Dosage: UNK, Q2W
     Route: 042
     Dates: start: 20050427, end: 20050721
  3. DOXORUBICIN HCL [Suspect]
     Indication: DIFFUSE LARGE B-CELL LYMPHOMA
     Dosage: UNK, Q2W
     Route: 042
     Dates: start: 20050427, end: 20050721
  4. VINCRISTINE [Suspect]
     Indication: DIFFUSE LARGE B-CELL LYMPHOMA
     Dosage: UNK, UNK
     Route: 042
     Dates: start: 20050427, end: 20050721
  5. PREDNISONE TAB [Suspect]
     Indication: DIFFUSE LARGE B-CELL LYMPHOMA
     Dosage: UNK, Q2W
     Route: 042
     Dates: start: 20050427, end: 20050721
  6. NUTRIFLEX [Concomitant]
     Indication: DRUG USE FOR UNKNOWN INDICATION
  7. HUMAN ALBUMIN 20% [Concomitant]
     Indication: DRUG USE FOR UNKNOWN INDICATION
  8. HYDROCORTISONE [Concomitant]
     Indication: DRUG USE FOR UNKNOWN INDICATION
     Dosage: 50 MG, QD
     Dates: start: 20050806, end: 20050809
  9. PANTOZOL [Concomitant]
     Indication: DRUG USE FOR UNKNOWN INDICATION
     Dosage: 40 MG, QD
     Dates: start: 20050807
  10. LIPOFUNDIN [Concomitant]
     Indication: DRUG USE FOR UNKNOWN INDICATION
     Dosage: 250 ML, UNK
     Dates: start: 20050809
  11. STEROFUNDIN [Concomitant]
     Indication: DRUG USE FOR UNKNOWN INDICATION
     Dosage: 500 UNK, QD
     Dates: start: 20050806

REACTIONS (1)
  - PNEUMONIA [None]
